FAERS Safety Report 18649070 (Version 3)
Quarter: 2021Q1

REPORT INFORMATION
  Report Type: Report from Study
  Country: US (occurrence: US)
  Receive Date: 20201222
  Receipt Date: 20210304
  Transmission Date: 20210419
  Serious: Yes (Death, Hospitalization)
  Sender: FDA-Public Use
  Company Number: US-ROCHE-2736929

PATIENT
  Age: 71 Year
  Sex: Male
  Weight: 107.8 kg

DRUGS (6)
  1. LIDOCAINE/PRILOCAINE [Concomitant]
     Active Substance: LIDOCAINE\PRILOCAINE
     Dosage: 2.5?2.5 %
     Dates: start: 20200807
  2. AUGMENTIN [Concomitant]
     Active Substance: AMOXICILLIN\CLAVULANATE POTASSIUM
  3. ASCORBIC ACID. [Concomitant]
     Active Substance: ASCORBIC ACID
     Dates: start: 20190708
  4. GATIFLOXACIN;PREDNISOLONE ACETATE [Concomitant]
     Dosage: 1?0.5 %
     Dates: start: 20200110
  5. OBINUTUZUMAB. [Suspect]
     Active Substance: OBINUTUZUMAB
     Indication: CENTRAL NERVOUS SYSTEM LYMPHOMA
     Dosage: LAST DOSE (1000 MG) CYCLE 10 (OF 12 CYCLES) ON 01/OCT/2020
     Route: 042
     Dates: start: 20190312, end: 20201226
  6. ALTEPLASE. [Concomitant]
     Active Substance: ALTEPLASE
     Dates: start: 20191111

REACTIONS (1)
  - COVID-19 [Fatal]

NARRATIVE: CASE EVENT DATE: 20201204
